FAERS Safety Report 5441212-8 (Version None)
Quarter: 2007Q3

REPORT INFORMATION
  Report Type: 
  Country: None (occurrence: None)
  Receive Date: 20070901
  Receipt Date: 20070822
  Transmission Date: 20080115
  Serious: Yes (Other)
  Sender: FDA-Public Use
  Company Number: US-PFIZER INC-2007070506

PATIENT
  Sex: Male
  Weight: 90.909 kg

DRUGS (11)
  1. LYRICA [Suspect]
     Indication: NEUROPATHY PERIPHERAL
     Route: 048
  2. METFORMIN HCL [Concomitant]
  3. METFORMIN HCL [Concomitant]
  4. GLYBURIDE [Concomitant]
  5. GLYBURIDE [Concomitant]
  6. VITAMINS [Concomitant]
  7. VITAMINS [Concomitant]
  8. CO-ENZYME Q-10/LECITHIN/LEMON BIOFLAVONOIDS/QUERCETIN [Concomitant]
  9. CO-ENZYME Q-10/LECITHIN/LEMON BIOFLAVONOIDS/QUERCETIN [Concomitant]
  10. INSULIN HUMAN [Concomitant]
  11. INSULIN HUMAN [Concomitant]

REACTIONS (14)
  - ASTHENIA [None]
  - CARPAL TUNNEL SYNDROME [None]
  - DEHYDRATION [None]
  - DRUG INEFFECTIVE [None]
  - HYPOAESTHESIA [None]
  - INCREASED APPETITE [None]
  - INSOMNIA [None]
  - INTERVERTEBRAL DISC PROTRUSION [None]
  - PAIN [None]
  - SCIATICA [None]
  - SENSATION OF PRESSURE [None]
  - SKIN LESION [None]
  - VISION BLURRED [None]
  - WEIGHT INCREASED [None]
